FAERS Safety Report 15645121 (Version 3)
Quarter: 2019Q2

REPORT INFORMATION
  Report Type: Spontaneous
  Country: US (occurrence: US)
  Receive Date: 20181121
  Receipt Date: 20190422
  Transmission Date: 20190711
  Serious: Yes (Congenital Anomaly, Other)
  Sender: FDA-Public Use
  Company Number: US-ASTRAZENECA-2018SF26032

PATIENT
  Age: 18113 Day
  Sex: Male
  Weight: 103.4 kg

DRUGS (38)
  1. NEXIUM [Suspect]
     Active Substance: ESOMEPRAZOLE MAGNESIUM
     Indication: DYSPEPSIA
     Route: 048
     Dates: start: 19960105, end: 20131201
  2. TOPAMAX [Concomitant]
     Active Substance: TOPIRAMATE
  3. CAPTOPRIL. [Concomitant]
     Active Substance: CAPTOPRIL
  4. TRAMADOL. [Concomitant]
     Active Substance: TRAMADOL
  5. METFORMIN [Concomitant]
     Active Substance: METFORMIN HYDROCHLORIDE
  6. SIMVASTATIN. [Concomitant]
     Active Substance: SIMVASTATIN
  7. NEXIUM [Suspect]
     Active Substance: ESOMEPRAZOLE MAGNESIUM
     Indication: DYSPEPSIA
     Route: 048
     Dates: start: 1996, end: 2013
  8. NEXIUM 24HR [Suspect]
     Active Substance: ESOMEPRAZOLE MAGNESIUM
     Route: 048
     Dates: start: 19960105, end: 20131201
  9. NORVASC [Concomitant]
     Active Substance: AMLODIPINE BESYLATE
  10. ROBAXIN [Concomitant]
     Active Substance: METHOCARBAMOL
  11. ALPRAZOLAM. [Concomitant]
     Active Substance: ALPRAZOLAM
  12. ACETAMINOPHEN. [Concomitant]
     Active Substance: ACETAMINOPHEN
  13. PREVACID [Suspect]
     Active Substance: LANSOPRAZOLE
     Route: 065
     Dates: start: 19960105, end: 20131201
  14. AMOXICILLIN. [Concomitant]
     Active Substance: AMOXICILLIN
  15. ATENOLOL. [Concomitant]
     Active Substance: ATENOLOL
  16. AZITHROMYCIN ANHYDROUS. [Concomitant]
     Active Substance: AZITHROMYCIN ANHYDROUS
  17. PROMETHAZINE [Concomitant]
     Active Substance: PROMETHAZINE\PROMETHAZINE HYDROCHLORIDE
  18. DICLOFENAC [Concomitant]
     Active Substance: DICLOFENAC
  19. PANTOPRAZOL [Suspect]
     Active Substance: PANTOPRAZOLE SODIUM
     Route: 065
     Dates: start: 19960105, end: 20131201
  20. CLONIDINE. [Concomitant]
     Active Substance: CLONIDINE
  21. FIORICET [Concomitant]
     Active Substance: ACETAMINOPHEN\BUTALBITAL\CAFFEINE
  22. REQUIP [Concomitant]
     Active Substance: ROPINIROLE HYDROCHLORIDE
  23. MELOXICAM. [Concomitant]
     Active Substance: MELOXICAM
  24. PRILOSEC [Suspect]
     Active Substance: OMEPRAZOLE MAGNESIUM
     Indication: DYSPEPSIA
     Route: 048
     Dates: start: 1996, end: 2013
  25. PREVACID 24 HR [Suspect]
     Active Substance: LANSOPRAZOLE
     Route: 065
     Dates: start: 19960105, end: 20131201
  26. ASPIRIN. [Concomitant]
     Active Substance: ASPIRIN
  27. TENEX [Concomitant]
     Active Substance: GUANFACINE HYDROCHLORIDE
  28. PRILOSEC [Suspect]
     Active Substance: OMEPRAZOLE MAGNESIUM
     Indication: DYSPEPSIA
     Route: 048
     Dates: start: 19960105, end: 20131201
  29. HYDROCODONE [Concomitant]
     Active Substance: HYDROCODONE
  30. LABETALOL [Concomitant]
     Active Substance: LABETALOL\LABETALOL HYDROCHLORIDE
  31. LOVASTATIN. [Concomitant]
     Active Substance: LOVASTATIN
  32. CARVEDILOL. [Concomitant]
     Active Substance: CARVEDILOL
  33. PRILOSEC OTC [Suspect]
     Active Substance: OMEPRAZOLE MAGNESIUM
     Route: 048
     Dates: start: 19960105, end: 20131201
  34. TYLENOL [Concomitant]
     Active Substance: ACETAMINOPHEN
  35. OXAPROZIN. [Concomitant]
     Active Substance: OXAPROZIN
  36. SERTRALINE [Concomitant]
     Active Substance: SERTRALINE HYDROCHLORIDE
  37. PRILOSEC [Suspect]
     Active Substance: OMEPRAZOLE MAGNESIUM
     Indication: DYSPEPSIA
     Route: 048
     Dates: start: 20050312
  38. GLIPIZIDE. [Concomitant]
     Active Substance: GLIPIZIDE

REACTIONS (3)
  - Renal failure [Unknown]
  - Nephropathy [Not Recovered/Not Resolved]
  - Chronic kidney disease [Unknown]

NARRATIVE: CASE EVENT DATE: 20131111
